FAERS Safety Report 4426711-X (Version None)
Quarter: 2004Q3

REPORT INFORMATION
  Report Type: 
  Country: None (occurrence: None)
  Receive Date: 20040812
  Receipt Date: 20040812
  Transmission Date: 20050211
  Serious: Yes (Death)
  Sender: FDA-Public Use
  Company Number: None

PATIENT
  Age: 85 Year
  Sex: Female
  Weight: 56.6996 kg

DRUGS (1)
  1. CORDARONE [Suspect]
     Indication: ATRIAL FIBRILLATION
     Dosage: 600MG DAY/23 DAY ORAL
     Route: 048
     Dates: start: 19910726, end: 19910818

REACTIONS (2)
  - LUNG DISORDER [None]
  - OFF LABEL USE [None]
